FAERS Safety Report 9260383 (Version 1)
Quarter: 2013Q2

REPORT INFORMATION
  Report Type: Report from Study
  Country: AR (occurrence: AR)
  Receive Date: 20130429
  Receipt Date: 20130429
  Transmission Date: 20140414
  Serious: Yes (Death)
  Sender: FDA-Public Use
  Company Number: PHHY2013AR042035

PATIENT
  Sex: Male

DRUGS (2)
  1. ONBREZ [Suspect]
  2. DIOVAN [Suspect]

REACTIONS (1)
  - Cardiac disorder [Fatal]
